FAERS Safety Report 21406708 (Version 1)
Quarter: 2022Q4

REPORT INFORMATION
  Report Type: Spontaneous
  Country: US (occurrence: US)
  Receive Date: 20221004
  Receipt Date: 20221004
  Transmission Date: 20230113
  Serious: No
  Sender: FDA-Public Use
  Company Number: US-BION-010542

PATIENT
  Sex: Female

DRUGS (1)
  1. IMODIUM A-D [Suspect]
     Active Substance: LOPERAMIDE HYDROCHLORIDE
     Indication: Anal incontinence
     Dosage: 2 EACH MORNING AND MORE THROUGHOUT THE DAY

REACTIONS (1)
  - Product use in unapproved indication [Not Recovered/Not Resolved]
